FAERS Safety Report 5347993-6 (Version None)
Quarter: 2007Q2

REPORT INFORMATION
  Report Type: 
  Country: None (occurrence: None)
  Receive Date: 20070606
  Receipt Date: 20070529
  Transmission Date: 20071010
  Serious: Yes (Hospitalization)
  Sender: FDA-Public Use
  Company Number: HQWYE576316APR07

PATIENT
  Sex: Male
  Weight: 15 kg

DRUGS (6)
  1. BENEFIX [Suspect]
     Indication: FACTOR IX DEFICIENCY
     Dosage: UNKNOWN DOSE
     Route: 042
     Dates: start: 20040621
  2. BENEFIX [Suspect]
     Route: 042
     Dates: start: 20040813, end: 20040813
  3. BENEFIX [Suspect]
     Dosage: UNKNOWN DOSE
     Route: 042
     Dates: start: 20050926, end: 20050926
  4. BENEFIX [Suspect]
     Route: 042
     Dates: start: 20050930, end: 20050930
  5. BENEFIX [Suspect]
     Dosage: UNKNOWN DOSE
     Route: 042
     Dates: start: 20070117, end: 20070117
  6. BENEFIX [Suspect]
     Route: 042
     Dates: start: 20070322, end: 20070322

REACTIONS (3)
  - ERYTHEMA MULTIFORME [None]
  - INJECTION SITE REACTION [None]
  - SERUM SICKNESS [None]
